FAERS Safety Report 4373824-7 (Version None)
Quarter: 2004Q1

REPORT INFORMATION
  Report Type: 
  Country: None (occurrence: None)
  Receive Date: 20040305
  Receipt Date: 20040112
  Transmission Date: 20041129
  Serious: Yes (Other)
  Sender: FDA-Public Use
  Company Number: 2003UW16494

PATIENT
  Age: 67 Year
  Sex: Female
  Weight: 108.8633 kg

DRUGS (11)
  1. CRESTOR [Suspect]
     Indication: BLOOD CHOLESTEROL INCREASED
     Dosage: 10 MG PO
     Route: 048
     Dates: start: 20031101
  2. ZETIA [Concomitant]
  3. AMITRIPTYLINE HCL [Concomitant]
  4. PRILOSEC [Concomitant]
  5. GLUCOTROL XL [Concomitant]
  6. NEURONTIN [Concomitant]
  7. DETROL [Concomitant]
  8. MENEST [Concomitant]
  9. NORVASC [Concomitant]
  10. LISINOPRIL [Concomitant]
  11. INSULIN [Concomitant]

REACTIONS (2)
  - AGITATION [None]
  - DYSPEPSIA [None]
